FAERS Safety Report 25818798 (Version 1)
Quarter: 2025Q3

REPORT INFORMATION
  Report Type: Report from Study
  Country: US (occurrence: US)
  Receive Date: 20250918
  Receipt Date: 20250918
  Transmission Date: 20251021
  Serious: Yes (Hospitalization, Other)
  Sender: KINIKSA PHARMACEUTICALS
  Company Number: US-KINIKSA PHARMACEUTICALS LTD.-2025KPU001885

PATIENT
  Age: 23 Year
  Sex: Male

DRUGS (1)
  1. ARCALYST [Suspect]
     Active Substance: RILONACEPT
     Indication: Pericarditis
     Dosage: 160 MILLIGRAM, QW
     Dates: start: 20250629

REACTIONS (5)
  - Pneumonia [Unknown]
  - Pyrexia [Recovered/Resolved]
  - Diarrhoea [Unknown]
  - Pericardial effusion [Unknown]
  - Pain [Unknown]

NARRATIVE: CASE EVENT DATE: 20250721
